FAERS Safety Report 16179404 (Version 1)
Quarter: 2019Q2

REPORT INFORMATION
  Report Type: Spontaneous
  Country: US (occurrence: US)
  Receive Date: 20190409
  Receipt Date: 20190409
  Transmission Date: 20190711
  Serious: No
  Sender: FDA-Public Use
  Company Number: None

PATIENT
  Age: 19 Year
  Sex: Male
  Weight: 68.04 kg

DRUGS (1)
  1. HEMPTRANCE NATURAL CBD GUMMIES [Suspect]
     Active Substance: CANNABIDIOL\HERBALS

REACTIONS (5)
  - Euphoric mood [None]
  - Paranoia [None]
  - Ocular hyperaemia [None]
  - Product formulation issue [None]
  - Product complaint [None]

NARRATIVE: CASE EVENT DATE: 20190404
